FAERS Safety Report 10954152 (Version 4)
Quarter: 2015Q2

REPORT INFORMATION
  Report Type: Spontaneous
  Country: GB (occurrence: GB)
  Receive Date: 20150325
  Receipt Date: 20150629
  Transmission Date: 20150821
  Serious: Yes (Hospitalization)
  Sender: FDA-Public Use
  Company Number: PHFR2015GB002435

PATIENT
  Age: 54 Year
  Sex: Female

DRUGS (4)
  1. OLANZAPINE. [Concomitant]
     Active Substance: OLANZAPINE
     Indication: PRODUCT USED FOR UNKNOWN INDICATION
     Dosage: 20 MG, QD
     Route: 048
     Dates: start: 20150313, end: 20150316
  2. CLOZARIL [Suspect]
     Active Substance: CLOZAPINE
     Indication: PSYCHOTIC DISORDER
     Dosage: UNK
     Route: 048
     Dates: start: 20060817
  3. CLOZARIL [Suspect]
     Active Substance: CLOZAPINE
     Indication: SCHIZOPHRENIA
     Dosage: 525 MG, DAILY (100 MG MORNINIG AND 425 MG NIGHT)
     Route: 048
  4. AMISULPRIDE [Concomitant]
     Active Substance: AMISULPRIDE
     Indication: PSYCHOTIC DISORDER
     Dosage: 300 MG, PRN (100 MG IN MORNING + 200 MG PRN)
     Route: 048

REACTIONS (4)
  - White blood cell count decreased [Recovered/Resolved]
  - Mental disorder [Recovering/Resolving]
  - Schizophrenia [Unknown]
  - Catatonia [Recovering/Resolving]

NARRATIVE: CASE EVENT DATE: 20150305
